FAERS Safety Report 21457372 (Version 1)
Quarter: 2022Q4

REPORT INFORMATION
  Report Type: Spontaneous
  Country: CZ (occurrence: CZ)
  Receive Date: 20221014
  Receipt Date: 20221014
  Transmission Date: 20230113
  Serious: Yes (Other)
  Sender: FDA-Public Use
  Company Number: None

PATIENT
  Age: 40 Year
  Sex: Male

DRUGS (3)
  1. CISPLATIN [Suspect]
     Active Substance: CISPLATIN
     Indication: Teratoma
     Dosage: UNK, 4 X TIP CHEMOTHERAPY
     Dates: start: 202102, end: 202104
  2. PACLITAXEL [Suspect]
     Active Substance: PACLITAXEL
     Indication: Testicular malignant teratoma
     Dosage: UNK, 4X TIP CHEMOTHERAPY
     Dates: start: 202102, end: 202104
  3. IFOSFAMIDE [Suspect]
     Active Substance: IFOSFAMIDE
     Indication: Adenocarcinoma
     Dosage: UNK, 4 X TIP CHEMOTHERAPY
     Dates: start: 202102, end: 202104

REACTIONS (3)
  - Anaemia [Recovered/Resolved]
  - Myelosuppression [Unknown]
  - Thrombocytopenia [Recovered/Resolved]

NARRATIVE: CASE EVENT DATE: 20210101
